FAERS Safety Report 5121053-1 (Version None)
Quarter: 2006Q4

REPORT INFORMATION
  Report Type: 
  Country: None (occurrence: None)
  Receive Date: 20061005
  Receipt Date: 20061003
  Transmission Date: 20070319
  Serious: Yes (Death)
  Sender: FDA-Public Use
  Company Number: US-JNJFOC-20060903208

PATIENT
  Sex: Female
  Weight: 77.11 kg

DRUGS (9)
  1. ULTRAM [Suspect]
     Indication: ARTHRITIS
     Route: 048
  2. ADVAIR DISKUS 100/50 [Concomitant]
     Indication: CHRONIC OBSTRUCTIVE PULMONARY DISEASE
     Route: 055
  3. PROCAINAMIDE [Concomitant]
     Indication: ARRHYTHMIA
  4. INDERAL [Concomitant]
     Indication: ARRHYTHMIA
  5. EFFEXOR [Concomitant]
     Indication: DEPRESSION
  6. XANAX [Concomitant]
     Indication: ANXIETY
  7. PROTONIX [Concomitant]
     Indication: GASTROOESOPHAGEAL REFLUX DISEASE
  8. ALBUTEROL [Concomitant]
     Indication: CHRONIC OBSTRUCTIVE PULMONARY DISEASE
  9. ATROVENT [Concomitant]
     Indication: CHRONIC OBSTRUCTIVE PULMONARY DISEASE

REACTIONS (2)
  - DEATH [None]
  - MYOCARDIAL INFARCTION [None]
